FAERS Safety Report 6756140-5 (Version None)
Quarter: 2010Q2

REPORT INFORMATION
  Report Type: 
  Country: None (occurrence: None)
  Receive Date: 20100604
  Receipt Date: 20100526
  Transmission Date: 20101027
  Serious: Yes (Other)
  Sender: FDA-Public Use
  Company Number: FI-JNJFOC-20100510300

PATIENT
  Age: 31 Year
  Weight: 49 kg

DRUGS (7)
  1. REMICADE [Suspect]
     Indication: CROHN'S DISEASE
     Route: 042
  2. REMICADE [Suspect]
     Route: 042
  3. ENTOCORT EC [Concomitant]
  4. PENTASA [Concomitant]
  5. TRAMAL [Concomitant]
  6. PANACOD [Concomitant]
  7. IMOVANE [Concomitant]

REACTIONS (13)
  - CONFUSIONAL STATE [None]
  - DISORIENTATION [None]
  - DYSARTHRIA [None]
  - DYSPNOEA [None]
  - HEADACHE [None]
  - LOSS OF CONSCIOUSNESS [None]
  - MIOSIS [None]
  - NYSTAGMUS [None]
  - OBSTRUCTION [None]
  - OXYGEN SATURATION DECREASED [None]
  - PARAESTHESIA [None]
  - SINUSITIS [None]
  - WHEEZING [None]
